FAERS Safety Report 19286036 (Version 1)
Quarter: 2021Q2

REPORT INFORMATION
  Report Type: Other
  Country: DE (occurrence: DE)
  Receive Date: 20210521
  Receipt Date: 20210521
  Transmission Date: 20210717
  Serious: Yes (Death)
  Sender: FDA-Public Use
  Company Number: DE-ROCHE-2834717

PATIENT
  Sex: Female

DRUGS (2)
  1. OXALIPLATIN. [Suspect]
     Active Substance: OXALIPLATIN
     Indication: RECTAL CANCER
     Dosage: OXALIPLATIN WAS ADMINISTERED AS A 2?HOUR INFUSION ON DAYS 1, 8, 22, AND 29 AT A DOSE OF 50 MG/M2/D
     Route: 065
  2. CAPECITABINE. [Suspect]
     Active Substance: CAPECITABINE
     Indication: RECTAL CANCER
     Dosage: AT A FIXED DOSE OF 825 MG/M2 TWICE DAILY ON DAYS 1 TO 14 AND 22 TO 35 OF RT.
     Route: 048

REACTIONS (1)
  - Sepsis [Fatal]
